FAERS Safety Report 22254725 (Version 1)
Quarter: 2023Q2

REPORT INFORMATION
  Report Type: Spontaneous
  Country: US (occurrence: None)
  Receive Date: 20230425
  Receipt Date: 20230425
  Transmission Date: 20230722
  Serious: Yes (Other)
  Sender: FDA-Public Use
  Company Number: None

PATIENT
  Age: 32 Year
  Sex: Female
  Weight: 76.5 kg

DRUGS (3)
  1. VYVANSE [Suspect]
     Active Substance: LISDEXAMFETAMINE DIMESYLATE
     Indication: Attention deficit hyperactivity disorder
     Route: 048
     Dates: start: 20230210, end: 20230413
  2. VITAMINS [Concomitant]
     Active Substance: VITAMINS
  3. FOLIC ACID [Concomitant]
     Active Substance: FOLIC ACID

REACTIONS (5)
  - Pseudostroke [None]
  - Cognitive disorder [None]
  - Product odour abnormal [None]
  - Vein disorder [None]
  - Communication disorder [None]

NARRATIVE: CASE EVENT DATE: 20230210
